FAERS Safety Report 7401884-5 (Version None)
Quarter: 2011Q2

REPORT INFORMATION
  Report Type: 
  Country: None (occurrence: None)
  Receive Date: 20110408
  Receipt Date: 20110404
  Transmission Date: 20111010
  Serious: Yes (Death, Other)
  Sender: FDA-Public Use
  Company Number: JP-BAYER-2011-026707

PATIENT
  Sex: Male

DRUGS (3)
  1. NEXAVAR [Suspect]
     Indication: HEPATIC NEOPLASM MALIGNANT
     Dosage: 200 MG, BID
     Route: 048
     Dates: start: 20100417, end: 20100510
  2. NEXAVAR [Suspect]
     Dosage: 400 MG, QD
     Route: 048
     Dates: start: 20100608, end: 20100819
  3. NEXAVAR [Suspect]
     Dosage: 200 MG, QD
     Route: 048
     Dates: start: 20100511, end: 20100607

REACTIONS (7)
  - PALMAR-PLANTAR ERYTHRODYSAESTHESIA SYNDROME [None]
  - DECREASED APPETITE [None]
  - LIVER DISORDER [None]
  - DIPLOPIA [None]
  - RASH [None]
  - NAUSEA [None]
  - HEPATIC NEOPLASM MALIGNANT [None]
